FAERS Safety Report 21748874 (Version 1)
Quarter: 2022Q4

REPORT INFORMATION
  Report Type: Spontaneous
  Country: US (occurrence: US)
  Receive Date: 20221219
  Receipt Date: 20221219
  Transmission Date: 20230113
  Serious: No
  Sender: FDA-Public Use
  Company Number: US-Calliditas-2022CAL00598

PATIENT
  Age: 59 Year
  Sex: Male

DRUGS (1)
  1. TARPEYO [Suspect]
     Active Substance: BUDESONIDE
     Indication: IgA nephropathy
     Dosage: 16 MG (4 CAPSULES) DAILY
     Route: 048

REACTIONS (5)
  - Personality change [Unknown]
  - Pollakiuria [Unknown]
  - Micturition urgency [Unknown]
  - Appetite disorder [Unknown]
  - Condition aggravated [Unknown]
